FAERS Safety Report 5567431-8 (Version None)
Quarter: 2007Q4

REPORT INFORMATION
  Report Type: 
  Country: None (occurrence: None)
  Receive Date: 20071214
  Receipt Date: 20071205
  Transmission Date: 20080405
  Serious: Yes (Hospitalization)
  Sender: FDA-Public Use
  Company Number: DE-JNJFOC-20070403795

PATIENT
  Age: 75 Year
  Sex: Female

DRUGS (7)
  1. DECITABINE (DECITABINE) LYOPHILIZED POWDER [Suspect]
     Indication: MYELODYSPLASTIC SYNDROME
     Dosage: 245.7 MG, IN 1 TOTAL, INTRAVENOUS
     Route: 042
     Dates: start: 20060808, end: 20060810
  2. METOPROLOL TARTRATE [Concomitant]
  3. QUINAPRIL HCL [Concomitant]
  4. OXAZEPAM [Concomitant]
  5. DIFLUCAN [Concomitant]
  6. BACTRIM DS [Concomitant]
  7. FOLIC ACID [Concomitant]

REACTIONS (2)
  - PHARYNGITIS [None]
  - PHARYNGOLARYNGEAL PAIN [None]
